FAERS Safety Report 16560121 (Version 2)
Quarter: 2019Q4

REPORT INFORMATION
  Report Type: Spontaneous
  Country: US (occurrence: US)
  Receive Date: 20190711
  Receipt Date: 20191001
  Transmission Date: 20200122
  Serious: Yes (Death, Other)
  Sender: FDA-Public Use
  Company Number: US-GLAXOSMITHKLINE-US2019GSK123299

PATIENT
  Sex: Male

DRUGS (1)
  1. PREVACID [Suspect]
     Active Substance: LANSOPRAZOLE
     Indication: DYSPEPSIA
     Dosage: 20 MG, QD
     Route: 065

REACTIONS (10)
  - Hypertension [Fatal]
  - Haemodialysis [Unknown]
  - Coronary artery disease [Fatal]
  - Type 2 diabetes mellitus [Fatal]
  - Nephropathy [Unknown]
  - Chronic kidney disease [Unknown]
  - End stage renal disease [Fatal]
  - Dialysis [Unknown]
  - Proteinuria [Unknown]
  - Cardio-respiratory arrest [Fatal]
